FAERS Safety Report 25911362 (Version 2)
Quarter: 2025Q4

REPORT INFORMATION
  Report Type: Spontaneous
  Country: US (occurrence: US)
  Receive Date: 20251013
  Receipt Date: 20251020
  Transmission Date: 20260118
  Serious: No
  Sender: Kenvue
  Company Number: US-KENVUE-20250913169

PATIENT
  Age: 75 Year
  Sex: Female

DRUGS (5)
  1. FAMOTIDINE [Interacting]
     Active Substance: FAMOTIDINE
     Indication: Product used for unknown indication
     Route: 065
  2. CLOTRIMAZOLE [Interacting]
     Active Substance: CLOTRIMAZOLE
     Indication: Urinary tract infection
     Dosage: UNK
     Route: 065
     Dates: start: 202508, end: 20250905
  3. KEVEYIS [Interacting]
     Active Substance: DICHLORPHENAMIDE
     Indication: Paralysis
     Dosage: 50 MILLIGRAM, TWICE A DAY
     Route: 048
     Dates: start: 20250826, end: 20250910
  4. METHENAMINE [Interacting]
     Active Substance: METHENAMINE
     Indication: Product used for unknown indication
     Route: 065
  5. BACTRIM [Concomitant]
     Active Substance: SULFAMETHOXAZOLE\TRIMETHOPRIM
     Indication: Product used for unknown indication
     Dosage: UNK
     Route: 065
     Dates: start: 202508, end: 20250905

REACTIONS (2)
  - Dysgeusia [Not Recovered/Not Resolved]
  - Drug interaction [Unknown]

NARRATIVE: CASE EVENT DATE: 20250801
